FAERS Safety Report 10700214 (Version 2)
Quarter: 2015Q1

REPORT INFORMATION
  Report Type: Spontaneous
  Country: JP (occurrence: None)
  Receive Date: 20150107
  Receipt Date: 20150209
  Transmission Date: 20150721
  Serious: Yes (Death)
  Sender: FDA-Public Use
  Company Number: 2014JP000762

PATIENT
  Age: 69 Year
  Sex: Male
  Weight: 54 kg

DRUGS (12)
  1. GLUCOBAY (ACARBOSE) [Concomitant]
  2. MIRCERA (METHOXY POLYETHYLENE GLYCOL-EPOETIN BETA) [Concomitant]
  3. FESIN (SACCHARATED IRON OXIDE) [Concomitant]
  4. KIKLIN (BIXALOMER) [Concomitant]
  5. REMITCH (NALFURAMINE HYDROCHLORIDE) [Concomitant]
  6. NESP (DARBEPOETINE ALFA) [Concomitant]
  7. PRORENAL  (LIMAPROST ALFADEX) [Concomitant]
  8. ERSIBON (ALFACALCIDOL) [Concomitant]
  9. GASTER D (FAMOTIDINE) [Concomitant]
  10. RIONA (FERRIC CITRATE) FILM-COATED TABLET [Suspect]
     Active Substance: FERRIC CITRATE ANHYDROUS
     Indication: HYPERPHOSPHATAEMIA
     Route: 048
     Dates: start: 20141111, end: 20141124
  11. CALTAN (CALCIUM CARBONATE) [Concomitant]
  12. EQUA (VILDAGLIPTIN) [Concomitant]
     Active Substance: VILDAGLIPTIN

REACTIONS (4)
  - Cardiac failure [None]
  - Haemoglobin increased [None]
  - Haematocrit increased [None]
  - Thrombosis [None]

NARRATIVE: CASE EVENT DATE: 20141217
